FAERS Safety Report 5371963-5 (Version None)
Quarter: 2007Q2

REPORT INFORMATION
  Report Type: 
  Country: None (occurrence: None)
  Receive Date: 20070625
  Receipt Date: 20070607
  Transmission Date: 20071010
  Serious: Yes (Other)
  Sender: FDA-Public Use
  Company Number: 2007EU001203

PATIENT
  Age: 49 Year
  Sex: Female
  Weight: 82 kg

DRUGS (5)
  1. VESICARE [Suspect]
     Indication: STRESS URINARY INCONTINENCE
     Dosage: 50 MG, ORAL
     Route: 048
     Dates: start: 20070420, end: 20070515
  2. CETIRIZINE HCL [Concomitant]
  3. CITALOPRAM (CITALOPRAM HYDROCHLORIDE) [Concomitant]
  4. IBUPROFEN [Concomitant]
  5. TAMOXIFEN [Concomitant]

REACTIONS (2)
  - COLITIS [None]
  - PROCTITIS [None]
